FAERS Safety Report 4847725-1 (Version None)
Quarter: 2005Q4

REPORT INFORMATION
  Report Type: 
  Country: None (occurrence: None)
  Receive Date: 20051207
  Receipt Date: 20051101
  Transmission Date: 20060501
  Serious: Yes (Death)
  Sender: FDA-Public Use
  Company Number: US-MERCK-0511USA00528

PATIENT
  Age: 56 Year
  Sex: Male
  Weight: 141 kg

DRUGS (1)
  1. VIOXX [Suspect]
     Indication: BACK PAIN
     Route: 048
     Dates: start: 20020503, end: 20031015

REACTIONS (16)
  - ACUTE MYOCARDIAL INFARCTION [None]
  - BACK PAIN [None]
  - CARDIAC FAILURE [None]
  - CEREBROVASCULAR ACCIDENT [None]
  - COLONIC POLYP [None]
  - GROIN PAIN [None]
  - HIATUS HERNIA [None]
  - HYPERLIPIDAEMIA [None]
  - INTERVERTEBRAL DISC DEGENERATION [None]
  - OEDEMA PERIPHERAL [None]
  - ORGAN FAILURE [None]
  - PULMONARY EMBOLISM [None]
  - ROAD TRAFFIC ACCIDENT [None]
  - SUDDEN CARDIAC DEATH [None]
  - THROMBOSIS [None]
  - VENOUS INSUFFICIENCY [None]
